FAERS Safety Report 5307771-0 (Version None)
Quarter: 2007Q2

REPORT INFORMATION
  Report Type: 
  Country: None (occurrence: None)
  Receive Date: 20070418
  Receipt Date: 20070403
  Transmission Date: 20071010
  Serious: Yes (Life-Threatening, Hospitalization)
  Sender: FDA-Public Use
  Company Number: 2007US000763

PATIENT
  Age: 74 Year
  Weight: 86 kg

DRUGS (1)
  1. ADENOSCAN (ADENOSINE) INJECTION [Suspect]
     Indication: SCAN MYOCARDIAL PERFUSION
     Dosage: 60 MG

REACTIONS (2)
  - DYSPNOEA [None]
  - OXYGEN SATURATION DECREASED [None]
